FAERS Safety Report 13620524 (Version 2)
Quarter: 2017Q3

REPORT INFORMATION
  Report Type: Spontaneous
  Country: US (occurrence: US)
  Receive Date: 20170607
  Receipt Date: 20170704
  Transmission Date: 20171127
  Serious: Yes (Hospitalization, Other)
  Sender: FDA-Public Use
  Company Number: US-AMGEN-USASP2017084108

PATIENT
  Age: 56 Year
  Sex: Female

DRUGS (14)
  1. FIBERCON [Concomitant]
     Active Substance: CALCIUM POLYCARBOPHIL
     Dosage: UNK UNK, QD
  2. ZAROXOLYN [Concomitant]
     Active Substance: METOLAZONE
     Dosage: UNK (BEFORE BUMEX)
  3. LEVOTHYROXINE. [Concomitant]
     Active Substance: LEVOTHYROXINE
     Dosage: 150 MUG, QD
  4. PLAVIX [Concomitant]
     Active Substance: CLOPIDOGREL BISULFATE
     Dosage: 75 MG, QD
  5. BUMEX [Concomitant]
     Active Substance: BUMETANIDE
     Dosage: 1 MG, BID
  6. AMLODIPINE [Concomitant]
     Active Substance: AMLODIPINE BESYLATE
     Dosage: 400 MG, QD
  7. BACTRIM DS [Concomitant]
     Active Substance: SULFAMETHOXAZOLE\TRIMETHOPRIM
     Dosage: 800/160 , QD
  8. EPOGEN [Suspect]
     Active Substance: ERYTHROPOIETIN
     Indication: NEPHROGENIC ANAEMIA
     Dosage: 1 ML, QWK
     Route: 065
     Dates: start: 201607
  9. PROTONIX [Concomitant]
     Active Substance: PANTOPRAZOLE SODIUM
     Dosage: 40 MG, BID
  10. MAGNESIUM [Concomitant]
     Active Substance: MAGNESIUM
     Dosage: 400 MG, BID
  11. DULERA [Concomitant]
     Active Substance: FORMOTEROL FUMARATE DIHYDRATE\MOMETASONE FUROATE
     Dosage: 200/5 MCG INHALER 2 PUFFS BID
  12. LOPRESSOR [Concomitant]
     Active Substance: METOPROLOL TARTRATE
     Dosage: 12.5 MG, (IN MORNING AND AT BEDTIME IF GREATER THAT 110)
  13. MICRO K [Concomitant]
     Dosage: 20 MEQ, Q3H (EIGHT TIMES A DAY)
  14. PRAVASTATIN. [Concomitant]
     Active Substance: PRAVASTATIN
     Dosage: 80 MG, QD

REACTIONS (8)
  - Coronary artery occlusion [Unknown]
  - Disability [Not Recovered/Not Resolved]
  - Stent placement [Unknown]
  - Gait inability [Recovering/Resolving]
  - Blister [Recovered/Resolved]
  - Implantable defibrillator insertion [Unknown]
  - Cardiac arrest [Unknown]
  - Large intestinal haemorrhage [Unknown]

NARRATIVE: CASE EVENT DATE: 201607
